FAERS Safety Report 5610812-4 (Version None)
Quarter: 2008Q1

REPORT INFORMATION
  Report Type: 
  Country: None (occurrence: None)
  Receive Date: 20080201
  Receipt Date: 20080122
  Transmission Date: 20080703
  Serious: Yes (Other)
  Sender: FDA-Public Use
  Company Number: PHBS2008FR01261

PATIENT
  Age: 50 Year
  Sex: Female

DRUGS (1)
  1. GLEEVEC [Suspect]
     Indication: CHRONIC MYELOID LEUKAEMIA
     Dosage: 400 MG/D
     Route: 065
     Dates: start: 20050301

REACTIONS (8)
  - BLOOD URIC ACID DECREASED [None]
  - FANCONI SYNDROME [None]
  - GLYCOSURIA [None]
  - HYPOMAGNESAEMIA [None]
  - HYPOPHOSPHATAEMIA [None]
  - MYALGIA [None]
  - RENAL FAILURE [None]
  - RENAL TUBULAR DISORDER [None]
